FAERS Safety Report 11467939 (Version 1)
Quarter: 2015Q3

REPORT INFORMATION
  Report Type: Spontaneous
  Country: NO (occurrence: NO)
  Receive Date: 20150908
  Receipt Date: 20150908
  Transmission Date: 20151125
  Serious: Yes (Hospitalization)
  Sender: FDA-Public Use
  Company Number: NO-BAYER-2015-067955

PATIENT
  Age: 43 Year
  Sex: Male

DRUGS (6)
  1. WELLBUTRIN SR [Suspect]
     Active Substance: BUPROPION HYDROCHLORIDE
     Dosage: UNK
     Route: 048
     Dates: start: 20141011, end: 20141016
  2. LORATADINE. [Suspect]
     Active Substance: LORATADINE
     Route: 048
     Dates: start: 20141011, end: 20141016
  3. LAMICTAL [Suspect]
     Active Substance: LAMOTRIGINE
     Dosage: 200 MG, TID
     Route: 048
     Dates: start: 20141011, end: 20141016
  4. RIVOTRIL [Suspect]
     Active Substance: CLONAZEPAM
     Route: 048
     Dates: start: 20141011, end: 20141016
  5. NEURONTIN [Suspect]
     Active Substance: GABAPENTIN
     Route: 048
     Dates: start: 20141011, end: 20141016
  6. QUETIAPINE [Suspect]
     Active Substance: QUETIAPINE
     Route: 048
     Dates: start: 20141011, end: 20141016

REACTIONS (6)
  - Dysarthria [Unknown]
  - Walking disability [Unknown]
  - Dizziness [Unknown]
  - Fatigue [Unknown]
  - Medication error [Recovered/Resolved]
  - Intercepted medication error [Recovered/Resolved]

NARRATIVE: CASE EVENT DATE: 20141011
